FAERS Safety Report 5844452 (Version 3)
Quarter: 2013Q2

REPORT INFORMATION
  Report Type: Spontaneous
  Country: US (occurrence: None)
  Receive Date: 20050718
  Receipt Date: 20120601
  Transmission Date: 20140414
  Serious: Yes (Other)
  Sender: FDA-Public Use
  Company Number: 238172

PATIENT
  Age: 64 Year
  Sex: Female
  Weight: 79.4 kg

DRUGS (19)
  1. ACTIVELLA [Suspect]
     Indication: HORMONE REPLACEMENT THERAPY
     Dosage: ORAL
     Route: 048
     Dates: start: 20020930, end: 200302
  2. PREMPRO [Suspect]
     Indication: HORMONE REPLACEMENT THERAPY
     Dates: start: 199712, end: 200209
  3. PREMARIN [Suspect]
     Indication: HORMONE REPLACEMENT THERAPY
     Dates: start: 198901, end: 199712
  4. PROVERA [Suspect]
     Indication: HORMONE REPLACEMENT THERAPY
     Dates: start: 198801, end: 199712
  5. MEDROXYPROGESTERONE ACETATE [Suspect]
     Indication: HORMONE REPLACEMENT THERAPY
  6. ESTROGENS [Suspect]
     Indication: HORMONE REPLACEMENT THERAPY
  7. MACROBID    /00024401/ (NITROFURANTOIN) [Concomitant]
  8. SYNTHROID (LEVOTHYROXINE SODIUM) [Concomitant]
  9. LIPITOR (ATORVASTATIN CALCIUM) [Concomitant]
  10. NEXIUM      /01479302/ (ESOMEPRAZOLE MAGNESIUM) [Concomitant]
  11. FOSAMAX (ALENDRONATE SODIUM) [Concomitant]
  12. PRILOSEC       /00661201/ (OMEPRAZOLE) [Concomitant]
  13. VERAPAMIL (VERAPAMIL) [Concomitant]
  14. IBUPROFEN (IBUPROFEN) [Concomitant]
  15. DURADRIN (DICHLORALPHENAZONE, ISOMETHEPTENE MUCATE, PARACETAMOL) [Concomitant]
  16. PREVACID (LANSOPRAZOLE) [Concomitant]
  17. SIMVASTATIN (SIMVASTATIN) [Concomitant]
  18. ZOMETA (ZOLEDRONIC ACID) [Concomitant]
  19. KEFLEX      /00145501/ (CEFALEXIN) [Concomitant]

REACTIONS (1)
  - BREAST CANCER [None]
